FAERS Safety Report 17533838 (Version 1)
Quarter: 2020Q1

REPORT INFORMATION
  Report Type: Spontaneous
  Country: ES (occurrence: ES)
  Receive Date: 20200312
  Receipt Date: 20200312
  Transmission Date: 20200409
  Serious: Yes (Hospitalization)
  Sender: FDA-Public Use
  Company Number: ES-B.I. PHARMACEUTICALS,INC./RIDGEFIELD-2020-12-013226

PATIENT
  Age: 69 Year
  Sex: Female
  Weight: 121 kg

DRUGS (10)
  1. SECALIP [Concomitant]
     Active Substance: FENOFIBRATE
     Indication: DYSLIPIDAEMIA
     Dosage: 1 TABLET EVERY DAY
     Route: 065
     Dates: start: 20190312
  2. JARDIANCE [Suspect]
     Active Substance: EMPAGLIFLOZIN
     Indication: TYPE 2 DIABETES MELLITUS
     Dosage: 1 TABLET EVERY DAY
     Route: 048
     Dates: start: 20190809, end: 20200214
  3. SEVIKAR HCT [Concomitant]
     Active Substance: AMLODIPINE BESYLATE\HYDROCHLOROTHIAZIDE\OLMESARTAN MEDOXOMIL
     Indication: HYPERTENSION
     Dosage: 1 TABLET EVERY DAY; FORM STRENGTH: 40/10/12,5MG
     Route: 065
     Dates: start: 20190109
  4. FORMODUAL [Concomitant]
     Active Substance: BECLOMETHASONE DIPROPIONATE\FORMOTEROL FUMARATE
     Indication: ASTHMA
     Dosage: 2 PUFFS EVERY 12 HOURS; FORM STRENGTH: 100/6MCG
     Route: 065
     Dates: start: 20191104
  5. PALEXIA [Concomitant]
     Active Substance: TAPENTADOL HYDROCHLORIDE
     Indication: ARTHRALGIA
     Dosage: 1 TABLET EVERY 12 HOURS
     Route: 065
     Dates: start: 20191122
  6. OPTOVITE B12 [Concomitant]
     Active Substance: CYANOCOBALAMIN
     Indication: PRODUCT USED FOR UNKNOWN INDICATION
     Dosage: 1 AMPOULE EVERY 30 DAYS
     Route: 065
     Dates: start: 20191122
  7. OMEPRAZOL [OMEPRAZOLE] [Concomitant]
     Active Substance: OMEPRAZOLE
     Indication: DYSPEPSIA
     Dosage: 1 CAPSULE EVERY DAY
     Route: 065
     Dates: start: 20190114
  8. SINTROM [Concomitant]
     Active Substance: ACENOCOUMAROL
     Indication: PULMONARY INFARCTION
     Dosage: 3 TABLETS EVERY DAY
     Route: 065
     Dates: start: 20180427
  9. PREVENCOR [ATORVASTATIN CALCIUM] [Concomitant]
     Indication: HYPERCHOLESTEROLAEMIA
     Dosage: 1 TABLET EVERY DAY
     Route: 065
     Dates: start: 20190312
  10. EFFICIB [Concomitant]
     Active Substance: METFORMIN HYDROCHLORIDE\SITAGLIPTIN PHOSPHATE
     Indication: PRODUCT USED FOR UNKNOWN INDICATION
     Dosage: 1 TABLET EVERY 12 HOURS; FORM STRENGTH: 50MG/1000MG
     Route: 048
     Dates: start: 20190312

REACTIONS (1)
  - Anal abscess [Recovering/Resolving]

NARRATIVE: CASE EVENT DATE: 20200125
